FAERS Safety Report 8802999 (Version 1)
Quarter: 2012Q4

REPORT INFORMATION
  Report Type: 
  Country: MY (occurrence: MY)
  Receive Date: 20120924
  Receipt Date: 20120924
  Transmission Date: 20130627
  Serious: Yes (Other)
  Sender: FDA-Public Use
  Company Number: MY-RANBAXY-2012R3-60077

PATIENT
  Age: 54 Year
  Sex: Male

DRUGS (1)
  1. SIMVOR [Suspect]
     Indication: DYSLIPIDAEMIA
     Dosage: 40 mg daily
     Route: 048

REACTIONS (3)
  - Loss of consciousness [Unknown]
  - Dizziness [Unknown]
  - Vision blurred [Unknown]
